FAERS Safety Report 12248298 (Version 1)
Quarter: 2016Q2

REPORT INFORMATION
  Report Type: Report from Study
  Country: US (occurrence: US)
  Receive Date: 20160408
  Receipt Date: 20160408
  Transmission Date: 20160815
  Serious: Yes (Hospitalization)
  Sender: FDA-Public Use
  Company Number: US-AMGEN-USASP2015095901

PATIENT
  Age: 49 Year
  Sex: Female

DRUGS (2)
  1. NPLATE [Suspect]
     Active Substance: ROMIPLOSTIM
     Indication: IMMUNE THROMBOCYTOPENIC PURPURA
     Dosage: UNKEVERY 3 TO 4 WEEKS
     Route: 065
     Dates: start: 201502
  2. SULFA                              /00076401/ [Suspect]
     Active Substance: SULFADIAZINE
     Indication: PRODUCT USED FOR UNKNOWN INDICATION
     Route: 065

REACTIONS (10)
  - Platelet count abnormal [Unknown]
  - Hot flush [Unknown]
  - Pain [Unknown]
  - Increased tendency to bruise [Unknown]
  - Headache [Unknown]
  - Skin discolouration [Unknown]
  - Bone pain [Not Recovered/Not Resolved]
  - Chest discomfort [Unknown]
  - Haemorrhoids [Unknown]
  - Dyspnoea [Unknown]

NARRATIVE: CASE EVENT DATE: 2015
